FAERS Safety Report 8162319-0 (Version None)
Quarter: 2012Q1

REPORT INFORMATION
  Report Type: 
  Country: None (occurrence: None)
  Receive Date: 20120224
  Receipt Date: 20110728
  Transmission Date: 20120608
  Serious: Yes (Hospitalization)
  Sender: FDA-Public Use
  Company Number: US-MYLANLABS-2011S1015651

PATIENT
  Age: 82 Year
  Sex: Male

DRUGS (6)
  1. FUROSEMIDE [Suspect]
  2. EPLERENONE [Suspect]
  3. HYDROCHLOROTHIAZIDE [Suspect]
  4. SAXAGLIPTIN [Suspect]
     Indication: TYPE 2 DIABETES MELLITUS
     Route: 048
     Dates: start: 20100526
  5. METFORMIN HCL [Suspect]
     Indication: TYPE 2 DIABETES MELLITUS
  6. PLACEBO [Suspect]
     Indication: TYPE 2 DIABETES MELLITUS
     Route: 048
     Dates: start: 20100526

REACTIONS (1)
  - RENAL FAILURE ACUTE [None]
